FAERS Safety Report 5328641-8 (Version None)
Quarter: 2007Q2

REPORT INFORMATION
  Report Type: 
  Country: None (occurrence: None)
  Receive Date: 20070514
  Receipt Date: 20061026
  Transmission Date: 20071010
  Serious: Yes (Other)
  Sender: FDA-Public Use
  Company Number: 2006SP005432

PATIENT
  Age: 38 Year
  Sex: Female

DRUGS (1)
  1. ASMANEX TWISTHALER [Suspect]
     Indication: PULMONARY CONGESTION

REACTIONS (10)
  - CARDIOVASCULAR DISORDER [None]
  - DYSPNOEA [None]
  - FALL [None]
  - GASTROINTESTINAL DISORDER [None]
  - HYPOTENSION [None]
  - INCONTINENCE [None]
  - NAUSEA [None]
  - PRURITUS [None]
  - SLEEP DISORDER [None]
  - WEIGHT DECREASED [None]
